FAERS Safety Report 17779941 (Version 2)
Quarter: 2020Q3

REPORT INFORMATION
  Report Type: Spontaneous
  Country: US (occurrence: US)
  Receive Date: 20200514
  Receipt Date: 20200731
  Transmission Date: 20201102
  Serious: Yes (Hospitalization, Other)
  Sender: FDA-Public Use
  Company Number: US-UNITED THERAPEUTICS-UNT-2020-006833

PATIENT
  Age: 41 Year
  Sex: Female

DRUGS (16)
  1. TEMOZOLOMIDE. [Suspect]
     Active Substance: TEMOZOLOMIDE
     Dosage: 100 MG/M2, DAILY 1 H PRIOR TO IRINOTECAN
     Route: 048
     Dates: start: 20190604, end: 20190608
  2. GABAPENTIN. [Suspect]
     Active Substance: GABAPENTIN
     Dosage: 100, DAY 3
     Route: 065
  3. IRINOTECAN [Suspect]
     Active Substance: IRINOTECAN
     Indication: NEUROBLASTOMA
     Dosage: 50 MG/M2, UNK, OVER 90 MIN
     Route: 041
     Dates: start: 20190416, end: 20190420
  4. IRINOTECAN [Suspect]
     Active Substance: IRINOTECAN
     Dosage: 50 MG/M2, UNK, OVER 90 MIN
     Route: 041
     Dates: start: 20190604, end: 20190608
  5. TEMOZOLOMIDE. [Suspect]
     Active Substance: TEMOZOLOMIDE
     Indication: NEUROBLASTOMA
     Dosage: 100 MG/M2, DAILY 1 H PRIOR TO IRINOTECAN
     Route: 048
     Dates: start: 20190416, end: 20190420
  6. TEMOZOLOMIDE. [Suspect]
     Active Substance: TEMOZOLOMIDE
     Dosage: 100 MG/M2, DAILY 1 H PRIOR TO IRINOTECAN
     Route: 048
     Dates: start: 20190722, end: 20190726
  7. GABAPENTIN. [Suspect]
     Active Substance: GABAPENTIN
     Dosage: 300, DAY 2
     Route: 065
  8. UNITUXIN [Suspect]
     Active Substance: DINUTUXIMAB
     Indication: NEUROBLASTOMA
     Dosage: 17.5 MG/M2, CONTINUING, OVER 10?20 H DAILY
     Route: 041
     Dates: start: 20190507, end: 20190510
  9. DIPHENHYDRAMINE. [Suspect]
     Active Substance: DIPHENHYDRAMINE
     Indication: PRURITUS
     Route: 065
  10. ATROPINE. [Suspect]
     Active Substance: ATROPINE
     Indication: PAIN
  11. UNITUXIN [Suspect]
     Active Substance: DINUTUXIMAB
     Dosage: 17.5 MG/M2, CONTINUING, OVER 10?20 H DAILY
     Route: 041
     Dates: start: 20190605, end: 20190608
  12. IRINOTECAN [Suspect]
     Active Substance: IRINOTECAN
     Dosage: 50 MG/M2, UNK, OVER 90 MIN
     Route: 041
     Dates: start: 20190722, end: 20190726
  13. GABAPENTIN. [Suspect]
     Active Substance: GABAPENTIN
     Indication: ANALGESIC THERAPY
     Dosage: 200, DAY 1
     Route: 065
  14. TEMOZOLOMIDE. [Suspect]
     Active Substance: TEMOZOLOMIDE
     Dosage: 100 MG/M2, DAILY 1 H PRIOR TO IRINOTECAN
     Route: 048
     Dates: start: 20190506, end: 20190510
  15. IRINOTECAN [Suspect]
     Active Substance: IRINOTECAN
     Dosage: 50 MG/M2, UNK, OVER 90 MIN
     Route: 041
     Dates: start: 20190506, end: 20190510
  16. ATROPINE. [Suspect]
     Active Substance: ATROPINE
     Indication: DIARRHOEA
     Route: 065

REACTIONS (26)
  - Abdominal pain upper [Recovered/Resolved]
  - Hypotension [Recovered/Resolved]
  - Bone pain [Unknown]
  - Electrocardiogram ST segment depression [Recovered/Resolved]
  - Diarrhoea [Recovered/Resolved]
  - Off label use [Unknown]
  - Pain in extremity [Recovered/Resolved]
  - Confusional state [Recovered/Resolved]
  - Nausea [Recovered/Resolved]
  - Gait disturbance [Unknown]
  - Urticaria [Recovered/Resolved]
  - Neuroblastoma [Recovered/Resolved]
  - Haemodynamic instability [Recovered/Resolved]
  - Constipation [Recovered/Resolved]
  - Vision blurred [Recovered/Resolved]
  - Neuralgia [Recovered/Resolved]
  - Pruritus [Recovered/Resolved]
  - Sinus tachycardia [Recovered/Resolved]
  - Asthenia [Unknown]
  - Drug hypersensitivity [Recovered/Resolved]
  - Mental status changes [Recovered/Resolved]
  - Pyrexia [Recovered/Resolved]
  - Chest pain [Recovered/Resolved]
  - Sedation [Recovered/Resolved]
  - Paraesthesia [Unknown]
  - Hypoaesthesia [Unknown]

NARRATIVE: CASE EVENT DATE: 2019
